FAERS Safety Report 24220634 (Version 1)
Quarter: 2024Q3

REPORT INFORMATION
  Report Type: Report from Study
  Country: IT (occurrence: IT)
  Receive Date: 20240818
  Receipt Date: 20240818
  Transmission Date: 20241016
  Serious: Yes (Other)
  Sender: TEVA
  Company Number: None

PATIENT
  Age: 6 Year
  Sex: Male
  Weight: 25 kg

DRUGS (7)
  1. METHOTREXATE [Suspect]
     Active Substance: METHOTREXATE
     Indication: B-cell type acute leukaemia
     Dosage: 450.00 MG INFUSION OVER 30 MIN. + 4070 MG INFUSION IN 1410 MIN., METOTRESSATO TEVA
     Route: 042
     Dates: start: 20240702, end: 20240703
  2. CYCLOPHOSPHAMIDE [Suspect]
     Active Substance: CYCLOPHOSPHAMIDE
     Indication: B-cell type acute leukaemia
     Dosage: 181.00 MG EVERY 12 HOURS, ENDOXAN BAXTER
     Route: 042
     Dates: start: 20240704, end: 20240706
  3. ERWINASE [Suspect]
     Active Substance: ASPARAGINASE ERWINIA CHRYSANTHEMI
     Indication: B-cell type acute leukaemia
     Dosage: 18000.00 IU ON 06, 08, 10, 12, 15, 17, 19/07/2024
     Route: 042
     Dates: start: 20240706, end: 20240719
  4. DEXAMETHASONE [Concomitant]
     Active Substance: DEXAMETHASONE
     Indication: B-cell type acute leukaemia
     Dosage: 6 MG EVERY 8 HOURS
     Route: 042
     Dates: start: 20240702, end: 20240709
  5. FILGRASTIM [Concomitant]
     Active Substance: FILGRASTIM
     Indication: Neutropenia
     Dosage: 150 MCG/DAY
     Route: 058
     Dates: start: 20240712, end: 20240719
  6. VINCRISTINE [Concomitant]
     Active Substance: VINCRISTINE
     Indication: B-cell type acute leukaemia
     Dosage: 1.36 MG ON 02 AND 07/07/2024,  VINCRISTINA TEVA ITALIA
     Route: 042
     Dates: start: 20240702, end: 20240707
  7. CYTARABINE [Suspect]
     Active Substance: CYTARABINE
     Indication: B-cell type acute leukaemia
     Dosage: 181,00 X 2 VV
     Route: 042
     Dates: start: 20240707, end: 20240707

REACTIONS (3)
  - Leukopenia [Recovered/Resolved]
  - Neutropenia [Recovered/Resolved]
  - Thrombocytopenia [Recovered/Resolved]

NARRATIVE: CASE EVENT DATE: 20240709
